FAERS Safety Report 6039354-1 (Version None)
Quarter: 2009Q1

REPORT INFORMATION
  Report Type: 
  Country: None (occurrence: None)
  Receive Date: 20090114
  Receipt Date: 20090107
  Transmission Date: 20090719
  Serious: Yes (Death)
  Sender: FDA-Public Use
  Company Number: 2009JP000116

PATIENT
  Age: 14 Year
  Sex: Male

DRUGS (3)
  1. TACROLIMUS [Suspect]
     Indication: SMALL INTESTINE TRANSPLANT
  2. MYCOPHENOLATE MOFETIL [Suspect]
     Indication: SMALL INTESTINE TRANSPLANT
     Dosage: 0.5 G, BID
  3. METHYLPREDNISOLONE [Concomitant]

REACTIONS (17)
  - APHASIA [None]
  - BRAIN INJURY [None]
  - COMA [None]
  - CULTURE URINE POSITIVE [None]
  - DRUG INEFFECTIVE [None]
  - DYSPNOEA [None]
  - ESCHERICHIA INFECTION [None]
  - FISTULA [None]
  - HAEMORRHAGE [None]
  - IMMUNOSUPPRESSANT DRUG LEVEL INCREASED [None]
  - KLEBSIELLA INFECTION [None]
  - PROCEDURAL SITE REACTION [None]
  - PYELONEPHRITIS [None]
  - RENAL FAILURE ACUTE [None]
  - SEPSIS [None]
  - TRANSPLANT REJECTION [None]
  - ULCER [None]
